FAERS Safety Report 6824580-1 (Version None)
Quarter: 2010Q3

REPORT INFORMATION
  Report Type: 
  Country: None (occurrence: None)
  Receive Date: 20100708
  Receipt Date: 20061107
  Transmission Date: 20110219
  Serious: Yes (Other)
  Sender: FDA-Public Use
  Company Number: US-PFIZER INC-2006138167

PATIENT
  Sex: Female
  Weight: 58.97 kg

DRUGS (7)
  1. CHANTIX [Suspect]
     Indication: EX-TOBACCO USER
     Dates: start: 20060101
  2. CYMBALTA [Concomitant]
  3. NEURONTIN [Concomitant]
  4. AMBIEN [Concomitant]
  5. KLONOPIN [Concomitant]
  6. MOBIC [Concomitant]
  7. FLEXERIL [Concomitant]

REACTIONS (4)
  - CONSTIPATION [None]
  - DEPRESSION [None]
  - RESTLESSNESS [None]
  - VOMITING [None]
